FAERS Safety Report 6434356 (Version 2)
Quarter: 2013Q1

REPORT INFORMATION
  Report Type: Spontaneous
  Country: US (occurrence: None)
  Receive Date: 20070921
  Receipt Date: 20121227
  Transmission Date: 20140127
  Serious: Yes (Other)
  Sender: FDA-Public Use
  Company Number: 2007US-09814

PATIENT
  Age: 45 Year
  Sex: Female

DRUGS (1)
  1. GANCICLOVIR [Suspect]
     Dosage: IMPLANT

REACTIONS (3)
  - ENDOPHTHALMITIS [None]
  - HYPOPYON [None]
  - DEVICE EXPULSION [None]
